FAERS Safety Report 7729908-6 (Version None)
Quarter: 2011Q3

REPORT INFORMATION
  Report Type: 
  Country: None (occurrence: None)
  Receive Date: 20110906
  Receipt Date: 20110830
  Transmission Date: 20111222
  Serious: Yes (Other)
  Sender: FDA-Public Use
  Company Number: ES-ROCHE-799741

PATIENT
  Age: 71 Year
  Sex: Male

DRUGS (6)
  1. CLONAZEPAM [Suspect]
     Route: 048
     Dates: start: 20110507
  2. ZYVOX [Interacting]
     Route: 048
     Dates: start: 20110518, end: 20110520
  3. OMEPRAZOLE [Concomitant]
     Route: 048
     Dates: start: 20110507, end: 20110525
  4. BISOPROLOL FUMARATE [Concomitant]
     Route: 048
     Dates: start: 20110513, end: 20110525
  5. PREVENCOR [Concomitant]
     Route: 048
     Dates: start: 20110507, end: 20110525
  6. FUROSEMIDE [Concomitant]
     Route: 048
     Dates: start: 20110507

REACTIONS (1)
  - SEROTONIN SYNDROME [None]
